FAERS Safety Report 9325246 (Version 1)
Quarter: 2013Q2

REPORT INFORMATION
  Report Type: Report from Study
  Country: MY (occurrence: MY)
  Receive Date: 20130604
  Receipt Date: 20130604
  Transmission Date: 20140414
  Serious: Yes (Other)
  Sender: FDA-Public Use
  Company Number: MY-ROCHE-1231483

PATIENT
  Age: 37 Year
  Sex: Male

DRUGS (2)
  1. PEGASYS [Suspect]
     Indication: HEPATITIS C
     Route: 058
     Dates: start: 20121005, end: 20130510
  2. RIBAVIRIN [Suspect]
     Indication: HEPATITIS C
     Dosage: 200MG EACH OTHER DAY
     Route: 048
     Dates: start: 201303, end: 20130510

REACTIONS (1)
  - Haemolysis [Not Recovered/Not Resolved]
